FAERS Safety Report 10572180 (Version 2)
Quarter: 2014Q4

REPORT INFORMATION
  Report Type: Spontaneous
  Country: NL (occurrence: NL)
  Receive Date: 20141108
  Receipt Date: 20141108
  Transmission Date: 20150529
  Serious: Yes (Death, Hospitalization)
  Sender: FDA-Public Use
  Company Number: NL-ASTRAZENECA-2014SE71832

PATIENT
  Age: 4097 Week
  Sex: Female

DRUGS (4)
  1. EXEMESTAANT [Suspect]
     Active Substance: EXEMESTANE
     Route: 065
  2. FASLODEX [Suspect]
     Active Substance: FULVESTRANT
     Indication: BREAST CANCER
     Route: 030
     Dates: start: 201407
  3. EVEOLIMUS [Suspect]
     Active Substance: EVEROLIMUS
     Route: 065
  4. PARANEOPLASTIC [Concomitant]

REACTIONS (2)
  - Thrombocytopenia [Fatal]
  - Haemolytic anaemia [Fatal]

NARRATIVE: CASE EVENT DATE: 201305
